FAERS Safety Report 10424218 (Version 2)
Quarter: 2014Q4

REPORT INFORMATION
  Report Type: Spontaneous
  Country: US (occurrence: US)
  Receive Date: 20140902
  Receipt Date: 20141030
  Transmission Date: 20150528
  Serious: No
  Sender: FDA-Public Use
  Company Number: US-PFIZER INC-2014239956

PATIENT
  Age: 64 Year
  Sex: Female

DRUGS (20)
  1. LEVOTHYROXINE SODIUM. [Concomitant]
     Active Substance: LEVOTHYROXINE SODIUM
     Dosage: 50 UG, 1X/DAY
     Route: 048
     Dates: start: 19900101
  2. LIDODERM [Concomitant]
     Active Substance: LIDOCAINE
     Dosage: 1 DF,  1 PATCH Q 24 HRS-ON-12HRS-OFF 12 HRS AS NEEDED
  3. ALENDRONATE SODIUM. [Concomitant]
     Active Substance: ALENDRONATE SODIUM
     Dosage: 70 MG, ONCE WEEKLY
     Route: 048
  4. ALLEGRA [Concomitant]
     Active Substance: FEXOFENADINE HYDROCHLORIDE
     Dosage: 180 MG, 1X/DAY
  5. CALCIUM CITRATE+D [Concomitant]
     Dosage: 1 DF (CALCIUM CITRATE 315MG, COLECALCIFEROL 250MG), 2X/DAY
     Route: 048
  6. CLONAZEPAM. [Concomitant]
     Active Substance: CLONAZEPAM
     Dosage: 1 MG, 1 TABLET BETIME
  7. FOLIC ACID. [Concomitant]
     Active Substance: FOLIC ACID
     Dosage: 1 MG, DAILY
     Route: 048
  8. METHOTREXATE [Concomitant]
     Active Substance: METHOTREXATE
     Dosage: 2.5 MG, 6 TABLETS WEEKLY
     Route: 048
     Dates: start: 19900101
  9. ALBUTEROL. [Concomitant]
     Active Substance: ALBUTEROL
     Dosage: 1 TO 2 PUFFS EVERY 4 TO 6 HOURS, AS NEEDED
     Route: 045
  10. MULTIPLE VITAMINS [Concomitant]
     Active Substance: VITAMINS
     Dosage: UNK, 1X/DAY
  11. VOLTAREN [Concomitant]
     Active Substance: DICLOFENAC SODIUM
     Dosage: 1 %, AS DIRECTED
  12. CYCLOBENZAPRINE HCL [Concomitant]
     Active Substance: CYCLOBENZAPRINE HYDROCHLORIDE
     Dosage: 5 MG, 1X/DAY
  13. NEXIUM [Concomitant]
     Active Substance: ESOMEPRAZOLE MAGNESIUM
     Dosage: 40 MG, 2X/DAY
     Route: 048
  14. OXYCODONE HCL [Concomitant]
     Active Substance: OXYCODONE HYDROCHLORIDE
     Dosage: 10 MG, 3 TIMES DAILY AS NEEDED
     Route: 048
  15. PREDNISONE. [Concomitant]
     Active Substance: PREDNISONE
     Dosage: 1 MG, 3X/DAY
     Route: 048
  16. QVAR [Concomitant]
     Active Substance: BECLOMETHASONE DIPROPIONATE
     Dosage: 1 DF, 2X/DAY
     Route: 055
  17. LATANOPROST. [Concomitant]
     Active Substance: LATANOPROST
     Dosage: 1 DF, 1 DROP IN BOTH EYES AT BEDTIME
  18. SINGULAIR [Concomitant]
     Active Substance: MONTELUKAST SODIUM
     Dosage: 10 MG, 1X/DAY
     Route: 048
  19. FLUTICASONE PROPIONATE. [Concomitant]
     Active Substance: FLUTICASONE PROPIONATE
     Dosage: UNK, 2 SPRAYS IN EACH NOSTRIL ONCE DAILY AS NEEDED
     Dates: start: 20140617
  20. LYRICA [Suspect]
     Active Substance: PREGABALIN
     Indication: FIBROMYALGIA
     Dosage: 100 MG, 2X/DAY
     Route: 048
     Dates: start: 2005

REACTIONS (1)
  - Fibromyalgia [Unknown]
